FAERS Safety Report 14951657 (Version 1)
Quarter: 2018Q2

REPORT INFORMATION
  Report Type: Spontaneous
  Country: GB (occurrence: GB)
  Receive Date: 20180530
  Receipt Date: 20180530
  Transmission Date: 20180711
  Serious: Yes (Other)
  Sender: FDA-Public Use
  Company Number: GB-VELOXIS PHARMACEUTICALS, INC.-2018VELGB0973

PATIENT
  Sex: Female

DRUGS (3)
  1. PREDNISOLONE. [Concomitant]
     Active Substance: PREDNISOLONE
     Indication: LIVER TRANSPLANT
  2. ENVARSUS XR [Suspect]
     Active Substance: TACROLIMUS
     Indication: LIVER TRANSPLANT
     Dosage: UNK
     Route: 065
  3. SIROLIMUS. [Concomitant]
     Active Substance: SIROLIMUS
     Indication: LIVER TRANSPLANT

REACTIONS (2)
  - Caesarean section [Unknown]
  - Maternal exposure during pregnancy [Unknown]
